FAERS Safety Report 8997023 (Version 1)
Quarter: 2012Q4

REPORT INFORMATION
  Report Type: Spontaneous
  Country: GB (occurrence: None)
  Receive Date: 20121221
  Receipt Date: 20121221
  Transmission Date: 20130627
  Serious: Yes (Other)
  Sender: FDA-Public Use
  Company Number: AUR-APL-2012-05314

PATIENT
  Age: 14 Year
  Sex: Male
  Weight: 50.25 kg

DRUGS (1)
  1. FLUOXETINE (FLUOXETINE) (FLUOXETINE) [Suspect]
     Indication: DEPRESSION
     Route: 048
     Dates: start: 20121031, end: 20121122

REACTIONS (4)
  - Cognitive disorder [None]
  - Hypersomnia [None]
  - Fatigue [None]
  - Hearing impaired [None]
